FAERS Safety Report 4414464-0 (Version None)
Quarter: 2004Q3

REPORT INFORMATION
  Report Type: 
  Country: None (occurrence: None)
  Receive Date: 20040702
  Receipt Date: 20030619
  Transmission Date: 20050211
  Serious: Yes (Disabling)
  Sender: FDA-Public Use
  Company Number: 309258

PATIENT
  Age: 45 Year
  Sex: Female
  Weight: 38.1 kg

DRUGS (1)
  1. KLONOPIN [Suspect]
     Indication: PANIC DISORDER
     Dosage: 3 MG DAILY ORAL
     Route: 048
     Dates: start: 19960615

REACTIONS (8)
  - ALOPECIA [None]
  - ANAEMIA [None]
  - BONE PAIN [None]
  - DEHYDRATION [None]
  - DRUG WITHDRAWAL SYNDROME [None]
  - MYALGIA [None]
  - PALPITATIONS [None]
  - VOMITING [None]
